FAERS Safety Report 24429406 (Version 1)
Quarter: 2024Q4

REPORT INFORMATION
  Report Type: Spontaneous
  Country: US (occurrence: US)
  Receive Date: 20241011
  Receipt Date: 20241011
  Transmission Date: 20250114
  Serious: Yes (Other)
  Sender: SANOFI AVENTIS
  Company Number: US-SA-2024SA293449

PATIENT
  Sex: Female

DRUGS (1)
  1. KEVZARA [Suspect]
     Active Substance: SARILUMAB
     Indication: Rheumatoid arthritis
     Dosage: 200 MG, QOW
     Route: 058
     Dates: start: 202012

REACTIONS (6)
  - Rheumatoid arthritis [Unknown]
  - Cardiac operation [Unknown]
  - Musculoskeletal stiffness [Unknown]
  - Pain [Unknown]
  - Fatigue [Unknown]
  - Neck pain [Unknown]
